FAERS Safety Report 19040021 (Version 7)
Quarter: 2021Q3

REPORT INFORMATION
  Report Type: Report from Study
  Country: NL (occurrence: NL)
  Receive Date: 20210323
  Receipt Date: 20210708
  Transmission Date: 20211014
  Serious: Yes (Hospitalization)
  Sender: FDA-Public Use
  Company Number: NL-BEH-2021128757

PATIENT
  Age: 21 Year
  Sex: Female
  Weight: 76 kg

DRUGS (7)
  1. PRIVIGEN [Suspect]
     Active Substance: HUMAN IMMUNOGLOBULIN G
     Indication: HUMORAL IMMUNE DEFECT
     Dosage: 35 GRAM, QD
     Route: 042
     Dates: start: 20210610, end: 20210614
  2. PRIVIGEN [Suspect]
     Active Substance: HUMAN IMMUNOGLOBULIN G
     Indication: EPILEPSY
     Dosage: 30 GRAM, QD
     Route: 042
     Dates: start: 20210308, end: 20210312
  3. FEXOFENADINE [Concomitant]
     Active Substance: FEXOFENADINE HYDROCHLORIDE
     Dosage: 180 MILLIGRAM, 1DD
  4. LANTUS [Concomitant]
     Active Substance: INSULIN GLARGINE
     Dosage: 22 UNITS, 1DD
  5. PRIVIGEN [Suspect]
     Active Substance: HUMAN IMMUNOGLOBULIN G
     Indication: AUTOIMMUNE DISORDER
     Dosage: 30 GRAM, QD
     Route: 042
     Dates: start: 202102, end: 20210220
  6. LEVETIRACETAM. [Concomitant]
     Active Substance: LEVETIRACETAM
     Dosage: 100 MILLIGRAM, 2DD
  7. NOVORAPID [Concomitant]
     Active Substance: INSULIN ASPART
     Dosage: 3DD 7 UNITS (EXTRA IF NEEDED)

REACTIONS (13)
  - Dyspnoea [Recovered/Resolved]
  - Eosinophil count increased [Recovered/Resolved]
  - Hypoalbuminaemia [Unknown]
  - No adverse event [Unknown]
  - Anaemia [Recovered/Resolved]
  - Hyperglycaemia [Recovered/Resolved]
  - Urinary tract infection [Recovered/Resolved]
  - Blood immunoglobulin G increased [Unknown]
  - Off label use [Unknown]
  - Hyponatraemia [Recovered/Resolved]
  - Dry skin [Recovered/Resolved]
  - Pruritus [Unknown]
  - Headache [Recovered/Resolved]

NARRATIVE: CASE EVENT DATE: 20210215
